FAERS Safety Report 24095075 (Version 2)
Quarter: 2024Q3

REPORT INFORMATION
  Report Type: Spontaneous
  Country: DE (occurrence: DE)
  Receive Date: 20240716
  Receipt Date: 20240720
  Transmission Date: 20241017
  Serious: Yes (Death, Hospitalization, Other)
  Sender: SANDOZ
  Company Number: DE-009507513-2405DEU007671

PATIENT
  Age: 69 Year
  Sex: Female
  Weight: 42 kg

DRUGS (6)
  1. CARBOPLATIN [Suspect]
     Active Substance: CARBOPLATIN
     Indication: Triple negative breast cancer
     Dosage: UNK
     Route: 065
     Dates: start: 202312, end: 202403
  2. CYCLOPHOSPHAMIDE [Suspect]
     Active Substance: CYCLOPHOSPHAMIDE
     Indication: Triple negative breast cancer
     Dosage: 500 MILLIGRAM
     Route: 042
     Dates: start: 20240411, end: 20240506
  3. EPIRUBICIN [Suspect]
     Active Substance: EPIRUBICIN
     Indication: Triple negative breast cancer
     Dosage: 70 MILLIGRAM
     Route: 042
     Dates: start: 20240411, end: 20240506
  4. PACLITAXEL [Suspect]
     Active Substance: PACLITAXEL
     Indication: Triple negative breast cancer
     Dosage: UNK
     Route: 065
     Dates: start: 202312, end: 202403
  5. PACLITAXEL [Suspect]
     Active Substance: PACLITAXEL
     Dosage: UNK
     Route: 065
     Dates: start: 202312, end: 202403
  6. PEMBROLIZUMAB [Suspect]
     Active Substance: PEMBROLIZUMAB
     Indication: Triple negative breast cancer
     Dosage: 200 MILLIGRAM, Q3W
     Route: 042
     Dates: start: 20231212, end: 20240506

REACTIONS (20)
  - Pneumonitis [Fatal]
  - Cerebral arteriosclerosis [Unknown]
  - Blood lactate dehydrogenase abnormal [Unknown]
  - Band neutrophil count increased [Unknown]
  - Bacterial infection [Unknown]
  - Blood glucose abnormal [Unknown]
  - Infection [Unknown]
  - Reticulocyte count abnormal [Unknown]
  - Blood calcium abnormal [Unknown]
  - C-reactive protein abnormal [Unknown]
  - Blood thyroid stimulating hormone abnormal [Unknown]
  - White blood cell count abnormal [Unknown]
  - Blood thyroid stimulating hormone abnormal [Unknown]
  - Laboratory test abnormal [Unknown]
  - Urine analysis abnormal [Unknown]
  - C-reactive protein abnormal [Unknown]
  - Mean cell volume abnormal [Unknown]
  - Monocyte count abnormal [Unknown]
  - Tri-iodothyronine abnormal [Unknown]
  - Mean cell volume abnormal [Unknown]

NARRATIVE: CASE EVENT DATE: 20240518
